FAERS Safety Report 14690807 (Version 1)
Quarter: 2018Q1

REPORT INFORMATION
  Report Type: Spontaneous
  Country: PH (occurrence: PH)
  Receive Date: 20180328
  Receipt Date: 20180328
  Transmission Date: 20180509
  Serious: Yes (Hospitalization)
  Sender: FDA-Public Use
  Company Number: PH-PFIZER INC-2018121035

PATIENT

DRUGS (1)
  1. INSPRA [Suspect]
     Active Substance: EPLERENONE
     Indication: PLEURAL EFFUSION
     Dosage: 50 MG, UNK

REACTIONS (3)
  - Rash macular [Unknown]
  - Off label use [Unknown]
  - Hypersensitivity [Unknown]
